FAERS Safety Report 17784862 (Version 2)
Quarter: 2020Q2

REPORT INFORMATION
  Report Type: Spontaneous
  Country: HU (occurrence: HU)
  Receive Date: 20200513
  Receipt Date: 20200527
  Transmission Date: 20200714
  Serious: Yes (Other)
  Sender: FDA-Public Use
  Company Number: NVSC2020HU129699

PATIENT
  Age: 60 Year
  Sex: Female

DRUGS (5)
  1. GILENYA [Suspect]
     Active Substance: FINGOLIMOD HYDROCHLORIDE
     Indication: PRODUCT USED FOR UNKNOWN INDICATION
  2. AVONEX [Suspect]
     Active Substance: INTERFERON BETA-1A
     Indication: PRODUCT USED FOR UNKNOWN INDICATION
     Dosage: UNK
     Route: 065
     Dates: start: 201210, end: 201411
  3. MABTHERA [Concomitant]
     Active Substance: RITUXIMAB
     Route: 065
  4. GILENYA [Suspect]
     Active Substance: FINGOLIMOD HYDROCHLORIDE
     Indication: PRODUCT USED FOR UNKNOWN INDICATION
     Dosage: UNK
     Route: 065
     Dates: start: 201411, end: 201504
  5. MABTHERA [Concomitant]
     Active Substance: RITUXIMAB
     Indication: PRODUCT USED FOR UNKNOWN INDICATION
     Route: 065

REACTIONS (9)
  - Pain [Unknown]
  - Spinal compression fracture [Unknown]
  - Gait disturbance [Not Recovered/Not Resolved]
  - Tumefactive multiple sclerosis [Unknown]
  - Liver function test abnormal [Unknown]
  - Affective disorder [Unknown]
  - Nephrosclerosis [Unknown]
  - Anaemia [Unknown]
  - Autoimmune disorder [Unknown]
